FAERS Safety Report 15507533 (Version 1)
Quarter: 2018Q4

REPORT INFORMATION
  Report Type: Spontaneous
  Country: FR (occurrence: FR)
  Receive Date: 20181016
  Receipt Date: 20181016
  Transmission Date: 20190205
  Serious: Yes (Hospitalization)
  Sender: FDA-Public Use
  Company Number: FR-009507513-1810FRA003526

PATIENT
  Age: 79 Year
  Sex: Female

DRUGS (1)
  1. KEYTRUDA [Suspect]
     Active Substance: PEMBROLIZUMAB
     Indication: MALIGNANT MELANOMA
     Dosage: CYCLICAL
     Route: 042
     Dates: start: 20170828, end: 20170828

REACTIONS (2)
  - Autoimmune hepatitis [Recovering/Resolving]
  - Primary biliary cholangitis [Recovering/Resolving]

NARRATIVE: CASE EVENT DATE: 20170919
